FAERS Safety Report 8571308-3 (Version None)
Quarter: 2012Q3

REPORT INFORMATION
  Report Type: 
  Country: None (occurrence: None)
  Receive Date: 20120806
  Receipt Date: 20120726
  Transmission Date: 20120928
  Serious: Yes (Other)
  Sender: FDA-Public Use
  Company Number: US-CELGENEUS-163-21880-12073048

PATIENT
  Sex: Male
  Weight: 99.426 kg

DRUGS (9)
  1. REVLIMID [Suspect]
     Indication: MULTIPLE MYELOMA
     Dosage: 10 MILLIGRAM
     Route: 048
     Dates: start: 20120526, end: 20120726
  2. CENTRUM [Concomitant]
     Route: 065
  3. LISINOPRIL [Concomitant]
     Dosage: 5 MILLIGRAM
     Route: 065
  4. ACYCLOVIR [Concomitant]
     Route: 065
  5. SINGULAIR [Concomitant]
     Route: 065
  6. VITAMIN B-12 [Concomitant]
     Route: 065
  7. VYTORIN [Concomitant]
     Route: 065
  8. ASPIRIN [Concomitant]
     Route: 065
  9. FISH OIL [Concomitant]
     Route: 065

REACTIONS (1)
  - ERYTHEMA MULTIFORME [None]
